FAERS Safety Report 7822876-8 (Version None)
Quarter: 2011Q4

REPORT INFORMATION
  Report Type: 
  Country: None (occurrence: None)
  Receive Date: 20111018
  Receipt Date: 20110627
  Transmission Date: 20120403
  Serious: No
  Sender: FDA-Public Use
  Company Number: US-ASTRAZENECA-2011SE38663

PATIENT
  Age: 65 Year
  Sex: Female
  Weight: 53.5 kg

DRUGS (5)
  1. ATENOLOL [Concomitant]
  2. LORAZEPAM [Concomitant]
  3. SYMBICORT [Suspect]
     Indication: ASTHMA
     Dosage: 2 PUFFS,TWO TIMES IN A DAY
     Route: 055
     Dates: start: 20110301
  4. ZYRTEC [Concomitant]
  5. FLONASE [Concomitant]

REACTIONS (1)
  - BLEPHAROSPASM [None]
